FAERS Safety Report 5805000-2 (Version None)
Quarter: 2008Q3

REPORT INFORMATION
  Report Type: 
  Country: None (occurrence: None)
  Receive Date: 20080709
  Receipt Date: 20080703
  Transmission Date: 20090109
  Serious: Yes (Life-Threatening, Hospitalization)
  Sender: FDA-Public Use
  Company Number: US-BOEHRINGER INGELHEIM GMBH, GERMANY-2008-BP-10317RO

PATIENT
  Age: 73 Year
  Sex: Male
  Weight: 105 kg

DRUGS (10)
  1. MORPHINE [Suspect]
     Indication: POSTOPERATIVE CARE
     Route: 042
  2. NALOXONE [Concomitant]
     Indication: OVERDOSE
     Route: 042
  3. NALOXONE [Concomitant]
  4. NALOXONE [Concomitant]
     Route: 042
  5. HYDROCODONE [Concomitant]
  6. IRBESARTAN [Concomitant]
  7. AMLODIPINE [Concomitant]
  8. HYDROCHLOROTHIAZIDE [Concomitant]
  9. BISOPROLOL FUMARATE [Concomitant]
  10. OXYGEN [Concomitant]
     Indication: OVERDOSE

REACTIONS (2)
  - DEVICE FAILURE [None]
  - OVERDOSE [None]
